FAERS Safety Report 5931203-2 (Version None)
Quarter: 2008Q4

REPORT INFORMATION
  Report Type: 
  Country: None (occurrence: None)
  Receive Date: 20081027
  Receipt Date: 20081022
  Transmission Date: 20090506
  Serious: Yes (Other)
  Sender: FDA-Public Use
  Company Number: PHEH2008US06808

PATIENT
  Sex: Female

DRUGS (2)
  1. VOLTAREN [Suspect]
     Dosage: UNK
  2. GLEEVEC [Suspect]
     Dosage: UNK
     Dates: start: 20030101

REACTIONS (1)
  - EYE HAEMORRHAGE [None]
